FAERS Safety Report 7014715-2 (Version None)
Quarter: 2010Q3

REPORT INFORMATION
  Report Type: 
  Country: None (occurrence: None)
  Receive Date: 20100927
  Receipt Date: 20100914
  Transmission Date: 20110219
  Serious: Yes (Other)
  Sender: FDA-Public Use
  Company Number: US-ELI_LILLY_AND_COMPANY-US201009003550

PATIENT
  Sex: Female

DRUGS (11)
  1. EVISTA [Suspect]
     Indication: OSTEOPOROSIS
     Dosage: 60 MG, DAILY (1/D)
     Dates: end: 20100516
  2. FORTEO [Suspect]
     Indication: OSTEOPOROSIS
     Dosage: 20 UG, DAILY (1/D)
     Dates: start: 20100908
  3. HUMALOG [Suspect]
     Indication: DIABETES MELLITUS
     Dosage: UNK, DAILY (1/D)
  4. COZAAR [Concomitant]
  5. ATENOLOL [Concomitant]
  6. TAGAMET /00397401/ [Concomitant]
  7. ASPIRIN [Concomitant]
  8. AMLODIPINE [Concomitant]
  9. SIMVASTATIN [Concomitant]
  10. CALCIUM WITH VITAMIN D /00944201/ [Concomitant]
  11. MULTI-VITAMIN [Concomitant]

REACTIONS (12)
  - BONE DENSITY DECREASED [None]
  - DIZZINESS [None]
  - DRUG INEFFECTIVE [None]
  - FALL [None]
  - FIBULA FRACTURE [None]
  - HEADACHE [None]
  - INJECTION SITE ERYTHEMA [None]
  - INJECTION SITE REACTION [None]
  - INJECTION SITE SWELLING [None]
  - TIBIA FRACTURE [None]
  - TOOTH INJURY [None]
  - WEIGHT DECREASED [None]
